FAERS Safety Report 9953557 (Version 3)
Quarter: 2014Q1

REPORT INFORMATION
  Report Type: Spontaneous
  Country: JP (occurrence: JP)
  Receive Date: 20140304
  Receipt Date: 20140314
  Transmission Date: 20141002
  Serious: Yes (Other)
  Sender: FDA-Public Use
  Company Number: JP-BRISTOL-MYERS SQUIBB COMPANY-20357448

PATIENT
  Age: 25 Year
  Sex: Male

DRUGS (2)
  1. ABILIFY TABS [Suspect]
     Route: 048
  2. STRATTERA [Concomitant]

REACTIONS (2)
  - Blood alkaline phosphatase increased [Recovered/Resolved]
  - Weight decreased [Unknown]
